FAERS Safety Report 7338027-2 (Version None)
Quarter: 2011Q1

REPORT INFORMATION
  Report Type: 
  Country: None (occurrence: None)
  Receive Date: 20110308
  Receipt Date: 20110222
  Transmission Date: 20110831
  Serious: Yes (Other)
  Sender: FDA-Public Use
  Company Number: PHHY2011MX16447

PATIENT
  Sex: Female

DRUGS (1)
  1. CO-DIOVAN [Suspect]
     Indication: HYPERTENSION
     Dosage: 160/25 MG PER DAY
     Dates: start: 19960101, end: 20101115

REACTIONS (5)
  - SENSATION OF HEAVINESS [None]
  - ASPHYXIA [None]
  - SOMNOLENCE [None]
  - PALPITATIONS [None]
  - HEADACHE [None]
